FAERS Safety Report 6689048-4 (Version None)
Quarter: 2010Q2

REPORT INFORMATION
  Report Type: 
  Country: None (occurrence: None)
  Receive Date: 20100409
  Receipt Date: 20090701
  Transmission Date: 20101027
  Serious: Yes (Life-Threatening, Other)
  Sender: FDA-Public Use
  Company Number: WAES 1004USA00481

PATIENT
  Age: 64 Year
  Sex: Female

DRUGS (8)
  1. ZOCOR [Suspect]
     Dosage: 20 MG/DAILY PO
     Route: 048
  2. ZESTRIL [Suspect]
     Dosage: 10 MG/DAILY PO
     Route: 048
  3. FOSAMAX [Suspect]
     Dosage: 70 MG/WKY PO
     Route: 048
  4. METOPROLOL [Suspect]
     Dosage: 25 MG/BID
  5. EXEMESTANE [Suspect]
     Indication: BREAST CANCER
     Dosage: 25 MG/DAILY
     Dates: start: 20060101, end: 20100305
  6. TRIAMTERENE AND HYDROCHLOROTHIAZIDE [Suspect]
     Dosage: 25 MG/DAILY
  7. AVANDAMET [Suspect]
  8. CALCIUM + VITAMIN D [Concomitant]

REACTIONS (1)
  - PULMONARY EMBOLISM [None]
